FAERS Safety Report 5252938-3 (Version None)
Quarter: 2007Q1

REPORT INFORMATION
  Report Type: 
  Country: None (occurrence: None)
  Receive Date: 20070301
  Receipt Date: 20070214
  Transmission Date: 20070707
  Serious: Yes (Hospitalization)
  Sender: FDA-Public Use
  Company Number: US-AMGEN-US211238

PATIENT
  Sex: Female

DRUGS (5)
  1. PANITUMUMAB [Suspect]
     Indication: COLORECTAL CANCER
     Route: 042
     Dates: start: 20060725, end: 20060725
  2. AVASTIN [Concomitant]
     Route: 042
  3. FLUOROURACIL [Concomitant]
     Route: 042
  4. LEUCOVORIN CALCIUM [Concomitant]
     Route: 042
  5. IRINOTECAN HCL [Concomitant]
     Route: 042

REACTIONS (4)
  - INFLAMMATION [None]
  - KLEBSIELLA INFECTION [None]
  - PAIN [None]
  - URINARY TRACT INFECTION [None]
